FAERS Safety Report 9139184 (Version 2)
Quarter: 2013Q1

REPORT INFORMATION
  Report Type: Spontaneous
  Country: US (occurrence: US)
  Receive Date: 20130305
  Receipt Date: 20130319
  Transmission Date: 20140127
  Serious: Yes (Other)
  Sender: FDA-Public Use
  Company Number: PHEH2013US002715

PATIENT
  Sex: Male

DRUGS (2)
  1. EXJADE [Suspect]
     Indication: IRON OVERLOAD
     Dosage: 500 MG, TID
     Route: 048
  2. EXJADE [Suspect]
     Dosage: 2 DF, QD (500 MG 2 QD)
     Route: 048
     Dates: start: 20100105, end: 20120218

REACTIONS (6)
  - Weight decreased [Unknown]
  - Renal disorder [Unknown]
  - Liver disorder [Unknown]
  - Asthenia [Unknown]
  - Blood iron increased [Unknown]
  - Diarrhoea [Unknown]
